FAERS Safety Report 7065566-4 (Version None)
Quarter: 2010Q4

REPORT INFORMATION
  Report Type: 
  Country: None (occurrence: None)
  Receive Date: 20101027
  Receipt Date: 20101026
  Transmission Date: 20110411
  Serious: Yes (Hospitalization)
  Sender: FDA-Public Use
  Company Number: PL-BRISTOL-MYERS SQUIBB COMPANY-15269939

PATIENT
  Age: 17 Year
  Sex: Female

DRUGS (12)
  1. ABILIFY [Suspect]
     Dosage: INCREASED TO 22.5 MG,30 MG/DAY
     Dates: start: 20080725
  2. MIANSERIN [Suspect]
     Dates: end: 20090309
  3. DEPAKENE [Suspect]
     Dates: end: 20090309
  4. QUETIAPINE [Suspect]
     Dosage: DOSE REDUCED TO 600 MG/DAY
  5. OLANZAPINE [Suspect]
  6. FLUOXETINE [Suspect]
  7. FLUANXOL [Suspect]
  8. FLUANXOL [Suspect]
  9. RISPERIDONE [Suspect]
     Dosage: 2MG/DAY
  10. TEGRETOL-XR [Suspect]
     Dosage: REDUCED TO 400MG: INCREASE TO 800MG/DAY
  11. LITHIUM [Suspect]
     Dosage: 1000MG/DAY
  12. CLORANXEN [Concomitant]

REACTIONS (4)
  - ANXIETY [None]
  - DRUG INEFFECTIVE [None]
  - IRRITABILITY [None]
  - SCHIZOPHRENIA, PARANOID TYPE [None]
